FAERS Safety Report 10590514 (Version 1)
Quarter: 2014Q4

REPORT INFORMATION
  Report Type: Spontaneous
  Country: GB (occurrence: GB)
  Receive Date: 20141118
  Receipt Date: 20141118
  Transmission Date: 20150529
  Serious: Yes (Life-Threatening, Hospitalization)
  Sender: FDA-Public Use
  Company Number: GB-PFIZER INC-2014313973

PATIENT
  Age: 44 Year
  Sex: Female

DRUGS (3)
  1. LOPERAMIDE [Concomitant]
     Active Substance: LOPERAMIDE
     Dosage: 4 MG, 1X/DAY
     Route: 048
  2. TAZOCIN [Suspect]
     Active Substance: PIPERACILLIN SODIUM\TAZOBACTAM SODIUM
     Indication: OSTEOMYELITIS CHRONIC
     Dosage: 4.5 G, 3X/DAY (PIPERACILLIN 4G, TAZOBACTAM 500MG)
     Route: 042
     Dates: start: 20141009, end: 20141031
  3. NOVOMIX [Concomitant]
     Active Substance: INSULIN ASPART
     Dosage: 100 IU/ML, VARIABLE ACCORDING TO BLOOD
     Route: 058

REACTIONS (3)
  - Neutropenia [Recovered/Resolved]
  - Chest discomfort [Unknown]
  - C-reactive protein increased [Unknown]

NARRATIVE: CASE EVENT DATE: 20141031
